FAERS Safety Report 18798056 (Version 1)
Quarter: 2021Q1

REPORT INFORMATION
  Report Type: Spontaneous
  Country: US (occurrence: US)
  Receive Date: 20210128
  Receipt Date: 20210128
  Transmission Date: 20210419
  Serious: No
  Sender: FDA-Public Use
  Company Number: US-ELI_LILLY_AND_COMPANY-US202101011891

PATIENT
  Age: 73 Year
  Sex: Female

DRUGS (2)
  1. FORTEO [Suspect]
     Active Substance: TERIPARATIDE
     Indication: CLAVICLE FRACTURE
  2. FORTEO [Suspect]
     Active Substance: TERIPARATIDE
     Indication: MULTIPLE FRACTURES
     Dosage: UNK UNK, UNKNOWN
     Route: 065

REACTIONS (4)
  - COVID-19 [Recovered/Resolved]
  - Off label use [Unknown]
  - Herpes zoster [Recovering/Resolving]
  - Rheumatoid arthritis [Unknown]

NARRATIVE: CASE EVENT DATE: 20201230
